FAERS Safety Report 7082308-7 (Version None)
Quarter: 2010Q4

REPORT INFORMATION
  Report Type: 
  Country: None (occurrence: None)
  Receive Date: 20101104
  Receipt Date: 20101021
  Transmission Date: 20110411
  Serious: Yes (Hospitalization)
  Sender: FDA-Public Use
  Company Number: IN-RANBAXY-2010RR-37684

PATIENT
  Age: 5 Year
  Sex: Male

DRUGS (7)
  1. PHENOBARBITAL [Suspect]
     Dosage: 1.5 MG/KG, UNK
  2. TOPIRAMATE [Suspect]
     Dosage: 5 MG/KG, UNK
  3. VALPROIC ACID [Suspect]
     Dosage: 30 MG/KG, QD
  4. CARBAMAZEPINE [Concomitant]
     Dosage: 25 MG/KG, UNK
  5. LEVETIRACETAM [Concomitant]
     Dosage: 75 MG/KG, UNK
  6. LAMOTRIGINE [Concomitant]
     Dosage: 2.5 MG/KG, UNK
  7. CLONAZEPAM [Concomitant]
     Dosage: 1 MG, UNK

REACTIONS (2)
  - DRUG INTERACTION [None]
  - HYPERAMMONAEMIC ENCEPHALOPATHY [None]
